FAERS Safety Report 24868917 (Version 1)
Quarter: 2025Q1

REPORT INFORMATION
  Report Type: Spontaneous
  Country: US (occurrence: None)
  Receive Date: 20250117
  Receipt Date: 20250117
  Transmission Date: 20250409
  Serious: Yes (Hospitalization)
  Sender: FDA-CTU
  Company Number: None

PATIENT
  Age: 65 Year
  Sex: Male

DRUGS (16)
  1. SIROLIMUS [Suspect]
     Active Substance: SIROLIMUS
     Indication: Heart transplant
     Dosage: 1.5 MG DAILY ORAL
     Route: 048
  2. TACROLIMUS [Suspect]
     Active Substance: TACROLIMUS
     Indication: Heart transplant
     Dosage: 2 MG TWICE A DAY ORAL
     Route: 048
  3. Eliquis 5 mg tabs [Concomitant]
  4. Ezetimibe 10 mg tabs [Concomitant]
  5. Gabapentin 100 mg caps [Concomitant]
  6. Levothyroxine 0.100 mg [Concomitant]
  7. NEUPRO 2 MG /24 HR PATCH [Concomitant]
  8. Clopidogrel 75 mg tabs [Concomitant]
  9. potassium chloride 20 meq tabs [Concomitant]
  10. pravastatin 40 mg tabs [Concomitant]
  11. prednisone 5 mg tabs [Concomitant]
  12. Sirolimus 0.5 mg tabs [Concomitant]
  13. Tacrolimus 1 mg caps [Concomitant]
  14. Torsemide 10 mg tabs [Concomitant]
  15. Valsartan 40 mg tabs [Concomitant]
  16. Ritalin 10 mg tabs [Concomitant]

REACTIONS (1)
  - Cardiac failure [None]

NARRATIVE: CASE EVENT DATE: 20250116
